FAERS Safety Report 7304685-1 (Version None)
Quarter: 2011Q1

REPORT INFORMATION
  Report Type: 
  Country: None (occurrence: None)
  Receive Date: 20110222
  Receipt Date: 20110208
  Transmission Date: 20110831
  Serious: Yes (Other)
  Sender: FDA-Public Use
  Company Number: JP-CELGENEUS-087-21880-10121547

PATIENT
  Sex: Female
  Weight: 44.4 kg

DRUGS (12)
  1. POSTERISAN [Concomitant]
     Route: 062
  2. ULCERLMIN [Concomitant]
     Route: 048
  3. REVLIMID [Suspect]
     Route: 048
     Dates: start: 20101124, end: 20101201
  4. ARICEPT [Concomitant]
     Route: 048
  5. CALSLOT [Concomitant]
     Route: 048
  6. BAKTAR [Concomitant]
     Route: 048
  7. REVLIMID [Suspect]
     Route: 048
     Dates: start: 20101215, end: 20110102
  8. ITRIZOLE [Concomitant]
     Route: 048
  9. REVLIMID [Suspect]
     Indication: MYELODYSPLASTIC SYNDROME
     Route: 048
     Dates: start: 20101018, end: 20101107
  10. REVLIMID [Suspect]
     Route: 048
     Dates: start: 20101115, end: 20101122
  11. BLOPRESS [Concomitant]
     Route: 048
  12. MARZULENE-S [Concomitant]
     Route: 065

REACTIONS (3)
  - ALANINE AMINOTRANSFERASE INCREASED [None]
  - NEUTROPHIL COUNT DECREASED [None]
  - PLATELET COUNT DECREASED [None]
